FAERS Safety Report 17294725 (Version 4)
Quarter: 2020Q1

REPORT INFORMATION
  Report Type: Spontaneous
  Country: US (occurrence: US)
  Receive Date: 20200121
  Receipt Date: 20200224
  Transmission Date: 20200409
  Serious: Yes (Hospitalization, Other)
  Sender: FDA-Public Use
  Company Number: US-PFIZER INC-2020024908

PATIENT
  Age: 69 Year
  Sex: Female

DRUGS (2)
  1. LORBRENA [Suspect]
     Active Substance: LORLATINIB
     Dosage: 25 MG, UNK
  2. LORBRENA [Suspect]
     Active Substance: LORLATINIB
     Indication: LUNG NEOPLASM MALIGNANT
     Dosage: 100 MG, 2X/DAY
     Route: 048

REACTIONS (5)
  - Prescribed overdose [Unknown]
  - Pneumonia [Unknown]
  - Pulmonary congestion [Unknown]
  - Pneumonitis [Recovering/Resolving]
  - Infection [Unknown]
